FAERS Safety Report 15204515 (Version 1)
Quarter: 2018Q3

REPORT INFORMATION
  Report Type: Report from Study
  Country: IN (occurrence: IN)
  Receive Date: 20180726
  Receipt Date: 20180726
  Transmission Date: 20181010
  Serious: Yes (Death)
  Sender: FDA-Public Use
  Company Number: IN-ALLERGAN-1837066US

PATIENT
  Age: 67 Year
  Sex: Male

DRUGS (3)
  1. BIMATOPROST 0.01% SOL (9668X) [Suspect]
     Active Substance: BIMATOPROST
     Indication: GLAUCOMA
     Dosage: 1 GTT, QHS
     Route: 047
     Dates: start: 20060901, end: 20180720
  2. GLUCOMOL [Concomitant]
     Dosage: UNK
  3. NATULAN [Concomitant]
     Active Substance: PROCARBAZINE HYDROCHLORIDE
     Dosage: UNK

REACTIONS (1)
  - Myocardial infarction [Fatal]
